FAERS Safety Report 9419378 (Version 2)
Quarter: 2013Q4

REPORT INFORMATION
  Report Type: Report from Study
  Country: BR (occurrence: BR)
  Receive Date: 20130725
  Receipt Date: 20131206
  Transmission Date: 20140711
  Serious: Yes (Hospitalization, Other)
  Sender: FDA-Public Use
  Company Number: BR-ROCHE-1252852

PATIENT
  Sex: Female
  Weight: 72 kg

DRUGS (9)
  1. MABTHERA [Suspect]
     Indication: RHEUMATOID ARTHRITIS
     Route: 042
     Dates: start: 20101001, end: 20111208
  2. AAS [Concomitant]
  3. OMEPRAZOLE [Concomitant]
  4. DIPYRONE [Concomitant]
  5. CELEBRA [Concomitant]
  6. METHOTREXATE [Concomitant]
  7. FOLIC ACID [Concomitant]
  8. SERTRALINE [Concomitant]
  9. ATENOLOL [Concomitant]

REACTIONS (5)
  - Pain in extremity [Unknown]
  - Infarction [Unknown]
  - Pulmonary oedema [Unknown]
  - Palpitations [Recovered/Resolved]
  - Labyrinthitis [Unknown]
